FAERS Safety Report 5368894-3 (Version None)
Quarter: 2007Q2

REPORT INFORMATION
  Report Type: 
  Country: None (occurrence: None)
  Receive Date: 20070625
  Receipt Date: 20061109
  Transmission Date: 20071010
  Serious: Yes (Other)
  Sender: FDA-Public Use
  Company Number: US-ASTRAZENECA-2006UW19662

PATIENT
  Age: 18832 Day
  Sex: Female
  Weight: 105 kg

DRUGS (3)
  1. CRESTOR [Suspect]
     Indication: BLOOD CHOLESTEROL INCREASED
     Route: 048
     Dates: start: 20060601
  2. TOPROL-XL [Concomitant]
     Indication: TACHYCARDIA
  3. ARIMIDEX [Concomitant]
     Indication: BREAST CANCER

REACTIONS (1)
  - HYPERGLYCAEMIA [None]
